FAERS Safety Report 15114651 (Version 1)
Quarter: 2018Q3

REPORT INFORMATION
  Report Type: Spontaneous
  Country: DE (occurrence: DE)
  Receive Date: 20180706
  Receipt Date: 20180706
  Transmission Date: 20181010
  Serious: Yes (Congenital Anomaly, Other)
  Sender: FDA-Public Use
  Company Number: DE-AUROBINDO-AUR-APL-2018-034407

PATIENT

DRUGS (11)
  1. ISOTRETINOIN. [Suspect]
     Active Substance: ISOTRETINOIN
     Indication: PRODUCT USED FOR UNKNOWN INDICATION
     Dosage: UNK
     Route: 065
  2. FROVATRIPTAN. [Suspect]
     Active Substance: FROVATRIPTAN
     Indication: MIGRAINE
     Dosage: UNK
     Route: 065
  3. SUMATRIPTAN. [Suspect]
     Active Substance: SUMATRIPTAN
     Indication: MIGRAINE
     Dosage: UNK
     Route: 064
  4. METOCLOPRAMIDE. [Concomitant]
     Active Substance: METOCLOPRAMIDE
     Indication: PRODUCT USED FOR UNKNOWN INDICATION
     Dosage: UNK
     Route: 064
  5. ZOLMITRIPTAN. [Suspect]
     Active Substance: ZOLMITRIPTAN
     Indication: MIGRAINE
     Dosage: UNK
     Route: 065
  6. METRONIDAZOLE. [Concomitant]
     Active Substance: METRONIDAZOLE
     Indication: PRODUCT USED FOR UNKNOWN INDICATION
     Dosage: UNK
     Route: 064
  7. LEVOTHYROXINE. [Concomitant]
     Active Substance: LEVOTHYROXINE
     Indication: PRODUCT USED FOR UNKNOWN INDICATION
     Dosage: UNK
     Route: 064
  8. NARATRIPTAN [Suspect]
     Active Substance: NARATRIPTAN HYDROCHLORIDE
     Indication: MIGRAINE
     Dosage: UNK
     Route: 065
  9. ELETRIPTAN. [Suspect]
     Active Substance: ELETRIPTAN
     Indication: MIGRAINE
     Dosage: UNK
     Route: 065
  10. CARBAMAZEPINE. [Suspect]
     Active Substance: CARBAMAZEPINE
     Indication: PRODUCT USED FOR UNKNOWN INDICATION
     Dosage: UNK
     Route: 065
  11. PARACETAMOL [Concomitant]
     Active Substance: ACETAMINOPHEN
     Indication: PRODUCT USED FOR UNKNOWN INDICATION
     Dosage: THE MOTHER RECEIVED PARACETAMOL DURING 1?3 TRIMESTER ()
     Route: 064

REACTIONS (15)
  - Microcephaly [Unknown]
  - Atrial septal defect [Unknown]
  - Polydactyly [Unknown]
  - Ventricular septal defect [Unknown]
  - Pulmonary artery stenosis [Unknown]
  - Foetal exposure during pregnancy [Unknown]
  - Talipes [Unknown]
  - Syndactyly [Unknown]
  - Poland^s syndrome [Unknown]
  - Renal aplasia [Unknown]
  - Microphthalmos [Unknown]
  - Maternal exposure during pregnancy [Unknown]
  - Palate injury [Unknown]
  - Cataract [Unknown]
  - Brachydactyly [Unknown]
